FAERS Safety Report 19109938 (Version 1)
Quarter: 2021Q2

REPORT INFORMATION
  Report Type: Spontaneous
  Country: BR (occurrence: BR)
  Receive Date: 20210408
  Receipt Date: 20210408
  Transmission Date: 20210717
  Serious: Yes (Hospitalization, Other)
  Sender: FDA-Public Use
  Company Number: BR-ROCHE-2807448

PATIENT
  Sex: Female

DRUGS (8)
  1. SIMVASTATIN. [Suspect]
     Active Substance: SIMVASTATIN
     Indication: BLOOD CHOLESTEROL INCREASED
     Dosage: AT NIGHT
     Route: 048
     Dates: start: 202006
  2. LORATADINE. [Concomitant]
     Active Substance: LORATADINE
     Indication: CYST
     Dosage: 1 DF, BID (MORNING AND NIGHT)
     Route: 048
     Dates: start: 2016, end: 2017
  3. LORATADINE. [Concomitant]
     Active Substance: LORATADINE
     Dosage: 1 DF, TID
     Route: 048
     Dates: start: 2017
  4. LORATADINE. [Concomitant]
     Active Substance: LORATADINE
     Dosage: 2 DF, BID (MORNING AND NIGHT)
     Route: 048
     Dates: end: 2020
  5. XOLAIR [Suspect]
     Active Substance: OMALIZUMAB
     Indication: CHRONIC SPONTANEOUS URTICARIA
     Dosage: UNK UNK, QMO (2 SYRINGES OF 150 MG) (ON THE ARM OR BELLY)
     Route: 065
     Dates: start: 20190522
  6. LORATADINE. [Concomitant]
     Active Substance: LORATADINE
     Dosage: 1 MG, BID (STARTED IN BEGINNING OF 2020)
     Route: 048
     Dates: start: 2020
  7. HYDROCHLOROTHIAZIDE. [Concomitant]
     Active Substance: HYDROCHLOROTHIAZIDE
     Indication: BLOOD CHOLESTEROL INCREASED
     Route: 048
  8. METFORMIN [Concomitant]
     Active Substance: METFORMIN HYDROCHLORIDE
     Indication: DIABETES MELLITUS
     Dosage: 1 DF, BID (STARTED ABOUT 2 YRS AGO)
     Route: 048

REACTIONS (2)
  - Bladder cyst [Recovered/Resolved]
  - Blood glucose increased [Recovered/Resolved]

NARRATIVE: CASE EVENT DATE: 202011
